FAERS Safety Report 9752021 (Version 1)
Quarter: 2013Q4

REPORT INFORMATION
  Report Type: Spontaneous
  Country: US (occurrence: None)
  Receive Date: 20131211
  Receipt Date: 20131211
  Transmission Date: 20140711
  Serious: Yes (Life-Threatening)
  Sender: FDA-Public Use
  Company Number: None

PATIENT
  Age: 52 Year
  Sex: Male
  Weight: 70 kg

DRUGS (2)
  1. PSEUDOEPHEDRINE [Suspect]
     Indication: NASAL CONGESTION
     Dates: start: 20131201, end: 20131205
  2. PHENYLEPHRINE ( PHENYLEPHRINE HYDROCHLORIDE) [Suspect]
     Indication: NASAL CONGESTION
     Dates: start: 20131201, end: 20131205

REACTIONS (2)
  - Cerebral haemorrhage [None]
  - Hypertension [None]
